FAERS Safety Report 5445614-5 (Version None)
Quarter: 2007Q3

REPORT INFORMATION
  Report Type: 
  Country: None (occurrence: None)
  Receive Date: 20070906
  Receipt Date: 20070831
  Transmission Date: 20080115
  Serious: Yes (Other)
  Sender: FDA-Public Use
  Company Number: ZA-ABBOTT-07P-143-0415718-00

PATIENT
  Age: 7 Year
  Sex: Male

DRUGS (4)
  1. EPILIM [Suspect]
     Indication: EPILEPSY
     Route: 048
  2. RISPERIDONE [Concomitant]
     Indication: PSYCHOTIC DISORDER
     Route: 048
  3. CITALOPRAM HYDROBROMIDE [Concomitant]
     Indication: PSYCHOTIC DISORDER
     Route: 048
  4. LAMOTRIGINE [Concomitant]
     Indication: DRUG USE FOR UNKNOWN INDICATION
     Dates: start: 20070815

REACTIONS (3)
  - ABNORMAL BEHAVIOUR [None]
  - CONVULSION [None]
  - DISINHIBITION [None]
